FAERS Safety Report 8311194 (Version 6)
Quarter: 2013Q2

REPORT INFORMATION
  Report Type: Spontaneous
  Country: JP (occurrence: JP)
  Receive Date: 20111227
  Receipt Date: 20130419
  Transmission Date: 20140414
  Serious: Yes (Life-Threatening, Hospitalization, Disabling, Other)
  Sender: FDA-Public Use
  Company Number: JP-B.I. PHARMACEUTICALS,INC./RIDGEFIELD-2011-BP-28424NB

PATIENT
  Age: 62 Year
  Sex: Male
  Weight: 55 kg

DRUGS (12)
  1. PRAZAXA [Suspect]
     Indication: ATRIAL FIBRILLATION
     Dosage: 220 MG
     Route: 048
     Dates: start: 20110524
  2. VASOLAN [Suspect]
     Indication: ATRIAL FIBRILLATION
     Dosage: 80 MG
     Route: 048
  3. VASOLAN [Suspect]
     Dosage: 220 MG
     Route: 048
  4. ENALAPRIL [Concomitant]
     Indication: HYPERTENSION
     Dosage: 10 MG
     Route: 048
  5. LASIX [Concomitant]
     Indication: HYPERTENSION
     Dosage: 30 MG
     Route: 048
  6. ARTIST [Concomitant]
     Indication: HYPERTENSION
     Dosage: 1.25 MG
     Route: 048
  7. MEXITIL [Concomitant]
     Indication: VENTRICULAR EXTRASYSTOLES
     Dosage: 200 MG
     Route: 048
  8. SODIUM BICARBONATE [Concomitant]
     Indication: GASTRITIS
     Dosage: 2 G
     Route: 048
  9. SEIBULE [Concomitant]
     Indication: TYPE 2 DIABETES MELLITUS
     Dosage: 75 MG
     Route: 048
  10. AMLODIN OD [Concomitant]
     Indication: HYPERTENSION
     Dosage: 2.5 MG
     Route: 048
  11. GASTER D [Concomitant]
     Indication: GASTRIC ULCER
     Dosage: 20 MG
     Route: 048
  12. MAGLAX [Concomitant]
     Indication: CONSTIPATION
     Dosage: 1500 MG
     Route: 048

REACTIONS (3)
  - Embolic stroke [Recovered/Resolved with Sequelae]
  - Drug ineffective [Unknown]
  - Drug interaction [Unknown]
